FAERS Safety Report 11210306 (Version 1)
Quarter: 2015Q2

REPORT INFORMATION
  Report Type: Spontaneous
  Country: US (occurrence: US)
  Receive Date: 20150622
  Receipt Date: 20150622
  Transmission Date: 20150821
  Serious: No
  Sender: FDA-Public Use
  Company Number: US-ASTELLAS-2015US001215

PATIENT
  Age: 75 Year
  Sex: Female

DRUGS (2)
  1. LEVOTHYROXINE [Concomitant]
     Active Substance: LEVOTHYROXINE
     Indication: THYROID DISORDER
     Route: 048
  2. VESICARE [Suspect]
     Active Substance: SOLIFENACIN SUCCINATE
     Indication: HYPERTONIC BLADDER
     Route: 048
     Dates: start: 20150109, end: 20150111

REACTIONS (3)
  - Eye pain [Not Recovered/Not Resolved]
  - Vision blurred [Recovered/Resolved]
  - Ear pain [Unknown]

NARRATIVE: CASE EVENT DATE: 20150109
